FAERS Safety Report 12180790 (Version 2)
Quarter: 2016Q1

REPORT INFORMATION
  Report Type: Spontaneous
  Country: CA (occurrence: CA)
  Receive Date: 20160315
  Receipt Date: 20160329
  Transmission Date: 20160526
  Serious: Yes (Hospitalization, Other)
  Sender: FDA-Public Use
  Company Number: CA-GILEAD-2016-0193148

PATIENT
  Age: 69 Year
  Sex: Female
  Weight: 81.9 kg

DRUGS (19)
  1. DIPHENHYDRAMINE. [Concomitant]
     Active Substance: DIPHENHYDRAMINE
     Indication: ORAL PAIN
     Dosage: 12.5 MG/5 ML ELIXIR 30.0 PMS; GARGLE 2/15 ML AND SWALLOW EVERY 204 HOURS AS NEEDED
     Route: 048
     Dates: start: 20160104
  2. METOCLOPRAMIDE. [Concomitant]
     Active Substance: METOCLOPRAMIDE
     Dosage: 10 MG, IF NEEDED
     Dates: start: 20151209
  3. INNOHEP [Concomitant]
     Active Substance: TINZAPARIN SODIUM
     Dosage: 1400 UNITS (0.5 ML)
     Route: 058
     Dates: start: 20151214
  4. APO-PROCHLORAZINE [Concomitant]
     Dosage: 10 MG, EVERY 9 HOURS AS NEEDED
     Route: 048
     Dates: start: 20151209
  5. NOVO-LOPERAMIDE [Concomitant]
     Indication: DIARRHOEA
     Dosage: 2 MG, PRN
     Dates: start: 20151209
  6. FIXMYSKIN HEALING BALM VANILLA FRAGRANCE [Concomitant]
     Active Substance: HYDROCORTISONE
     Indication: ORAL PAIN
     Dosage: 5.0 10 MG 120 PMS; GARGLE 2/15 ML AND SWALLOW EVERY 204 HOURS AS NEEDED
     Route: 048
     Dates: start: 20160104
  7. LAX-A-DAY [Concomitant]
     Dosage: 17G POWDER DILUTED IN 250 ML LIQUID
     Route: 048
     Dates: start: 20151207
  8. ZYDELIG [Suspect]
     Active Substance: IDELALISIB
     Indication: NON-HODGKIN^S LYMPHOMA
     Dosage: 150 MG, BID
     Route: 048
     Dates: start: 20151209, end: 20160106
  9. MCAL [Concomitant]
     Dosage: D 400 500 MG-400UI
     Route: 048
     Dates: start: 20151230
  10. FLAMAZINE [Concomitant]
     Active Substance: SILVER SULFADIAZINE
     Dosage: 1 %, BID, X 4 WEEKS
     Route: 061
     Dates: start: 20151207
  11. SALBUTAMOL HFA [Concomitant]
     Active Substance: ALBUTEROL
     Dosage: 100 MCG/DOSE AEROSOL SOLUTION 2 INHALATIONS 4 TIMES DAILY AS NEEDED
     Route: 055
     Dates: start: 20151020
  12. FLOVENT HFA [Concomitant]
     Active Substance: FLUTICASONE PROPIONATE
     Dosage: 250 MCG/DOSE AEROSOL SOLUTION
     Route: 055
     Dates: start: 20151020
  13. HYDROMORPH CONTIN [Concomitant]
     Active Substance: HYDROMORPHONE
     Dosage: 3 MG LA CAPS 12H; 1 TWICE DAILY
     Route: 048
     Dates: start: 20151230
  14. EURO-FERROUS SULFATE [Concomitant]
     Dosage: 300 MG, BID
     Route: 048
     Dates: start: 20151219
  15. ATIVAN [Concomitant]
     Active Substance: LORAZEPAM
     Dosage: 1 1/2 1 MG TABLET 4 TIMES DAILY AS NEEDED
     Route: 048
     Dates: start: 20151219
  16. NYSTATIN. [Concomitant]
     Active Substance: NYSTATIN
     Indication: ORAL PAIN
     Dosage: 100000 UI/ML 65.0 DISTILLED WATER;GARGLE 2/15 ML AND SWALLOW EVERY 204 HOURS AS NEEDED
     Route: 048
     Dates: start: 20160104
  17. RISEDRONATE [Concomitant]
     Active Substance: RISEDRONATE SODIUM
     Dosage: 35 MG, Q1WK
     Route: 048
     Dates: start: 20151219
  18. ACETAMINOPHEN. [Concomitant]
     Active Substance: ACETAMINOPHEN
     Dosage: 325 MG (2 TABLETS Q 4 HOURS AS NEEDED;
     Route: 048
     Dates: start: 20151219
  19. PMS-OMEPRAZOLE [Concomitant]
     Dosage: 20 MG, BID
     Route: 048
     Dates: start: 20151219

REACTIONS (3)
  - Hyponatraemia [Unknown]
  - Cardiomyopathy [Unknown]
  - Cardiac failure [Unknown]

NARRATIVE: CASE EVENT DATE: 20160110
